FAERS Safety Report 16818824 (Version 1)
Quarter: 2019Q3

REPORT INFORMATION
  Report Type: Spontaneous
  Country: NL (occurrence: NL)
  Receive Date: 20190917
  Receipt Date: 20190917
  Transmission Date: 20191005
  Serious: Yes (Hospitalization)
  Sender: FDA-Public Use
  Company Number: NL-JNJFOC-20190909573

PATIENT
  Age: 36 Year
  Sex: Female
  Weight: 85 kg

DRUGS (1)
  1. REMICADE [Suspect]
     Active Substance: INFLIXIMAB
     Indication: HIDRADENITIS
     Route: 042
     Dates: start: 20180201

REACTIONS (6)
  - Muscle twitching [Recovered/Resolved with Sequelae]
  - Product use in unapproved indication [Unknown]
  - Off label use [Unknown]
  - Muscle spasms [Recovered/Resolved with Sequelae]
  - Muscle discomfort [Recovered/Resolved with Sequelae]
  - Knee deformity [Recovered/Resolved with Sequelae]

NARRATIVE: CASE EVENT DATE: 20180201
